FAERS Safety Report 6189309-1 (Version None)
Quarter: 2009Q2

REPORT INFORMATION
  Report Type: 
  Country: None (occurrence: None)
  Receive Date: 20090513
  Receipt Date: 20090504
  Transmission Date: 20091009
  Serious: Yes (Other)
  Sender: FDA-Public Use
  Company Number: GR-GENENTECH-282827

PATIENT
  Age: 48 Year
  Sex: Female

DRUGS (3)
  1. HERCEPTIN [Suspect]
     Indication: BREAST CANCER METASTATIC
     Dosage: 150 MG, Q3W
     Route: 042
     Dates: start: 20090101, end: 20090401
  2. TAXOTERE [Concomitant]
     Indication: DRUG USE FOR UNKNOWN INDICATION
     Dosage: UNK
  3. LAPATINIB [Concomitant]
     Indication: DRUG USE FOR UNKNOWN INDICATION
     Dosage: UNK
     Dates: start: 20090301

REACTIONS (2)
  - IRIDOCYCLITIS [None]
  - NO THERAPEUTIC RESPONSE [None]
